FAERS Safety Report 6069874-5 (Version None)
Quarter: 2009Q1

REPORT INFORMATION
  Report Type: 
  Country: None (occurrence: None)
  Receive Date: 20090204
  Receipt Date: 20090204
  Transmission Date: 20090719
  Serious: Yes (Other)
  Sender: FDA-Public Use
  Company Number: None

PATIENT
  Sex: Female

DRUGS (1)
  1. VENOFER [Suspect]
     Indication: BLOOD IRON DECREASED
     Dosage: 200MG ONE TIME IV DRIP
     Route: 041
     Dates: start: 20090127, end: 20090127

REACTIONS (1)
  - RASH [None]
